FAERS Safety Report 11554188 (Version 3)
Quarter: 2015Q4

REPORT INFORMATION
  Report Type: Report from Study
  Country: FR (occurrence: FR)
  Receive Date: 20150925
  Receipt Date: 20151014
  Transmission Date: 20160304
  Serious: Yes (Hospitalization)
  Sender: FDA-Public Use
  Company Number: FR-PFIZER INC-2015314825

PATIENT
  Age: 44 Year
  Sex: Female

DRUGS (14)
  1. NARDELZINE [Suspect]
     Active Substance: PHENELZINE SULFATE
     Dosage: 1 DF, 3X/DAY
     Route: 048
     Dates: start: 20150731, end: 20150803
  2. INEXIUM /01479302/ [Concomitant]
     Active Substance: ESOMEPRAZOLE MAGNESIUM
     Dosage: 20 MG, DAILY
     Dates: start: 20150610
  3. TERALITHE [Concomitant]
     Active Substance: LITHIUM CARBONATE
     Dosage: 800 MG, 1X/DAY IN THE EVENING
     Route: 048
     Dates: start: 2012, end: 20150730
  4. DOLIPRANE [Concomitant]
     Active Substance: ACETAMINOPHEN
  5. NARDELZINE [Suspect]
     Active Substance: PHENELZINE SULFATE
     Dosage: 1 DF, DAILY
     Route: 048
     Dates: start: 20150717, end: 20150718
  6. NARDELZINE [Suspect]
     Active Substance: PHENELZINE SULFATE
     Dosage: 3 DF, DAILY
     Route: 048
     Dates: start: 20150721, end: 20150731
  7. LOXEN /00639802/ [Concomitant]
     Active Substance: NICARDIPINE
     Dosage: 20 MG, (1 TABLET EVERY FOUR HOURS)
     Dates: start: 20150713
  8. LORAZEPAM MYLAN [Concomitant]
     Active Substance: LORAZEPAM
     Dosage: 2.5 MG, UNK (HALF TABLET DAILY (MAXIMUM 1 TABLET DAILY))
     Route: 048
     Dates: start: 20150707, end: 20150727
  9. TERALITHE [Concomitant]
     Active Substance: LITHIUM CARBONATE
     Dosage: 800 MG, 1X/DAY IN THE EVENING
     Route: 048
     Dates: start: 20150803, end: 20150816
  10. STILNOX [Concomitant]
     Active Substance: ZOLPIDEM TARTRATE
     Dosage: 10 MG, AS NEEDED
     Dates: start: 20150529
  11. TRANSIPEG /00754501/ [Concomitant]
     Active Substance: POLYETHYLENE GLYCOL 3350
  12. TERALITHE [Concomitant]
     Active Substance: LITHIUM CARBONATE
     Dosage: 800 MG, IN THE EVENING EXCEPT ON MONDAY AND ON WEDNESDAY
     Route: 048
     Dates: start: 20150818, end: 20150825
  13. NARDELZINE [Suspect]
     Active Substance: PHENELZINE SULFATE
     Dosage: 2 DF, DAILY
     Route: 048
     Dates: start: 20150719, end: 20150720
  14. TERALITHE [Concomitant]
     Active Substance: LITHIUM CARBONATE
     Dosage: 400 MG, 1X/DAY IN THE EVENING
     Route: 048
     Dates: start: 20150731, end: 20150802

REACTIONS (1)
  - Depression [Recovered/Resolved]

NARRATIVE: CASE EVENT DATE: 20150720
